FAERS Safety Report 9221640 (Version 1)
Quarter: 2013Q2

REPORT INFORMATION
  Report Type: Spontaneous
  Country: ES (occurrence: ES)
  Receive Date: 20130410
  Receipt Date: 20130410
  Transmission Date: 20140414
  Serious: Yes (Congenital Anomaly)
  Sender: FDA-Public Use
  Company Number: ES-AMGEN-ESPSP2013023291

PATIENT
  Sex: 0

DRUGS (1)
  1. MIMPARA [Suspect]
     Dosage: 30 MG, Q12H
     Route: 064

REACTIONS (1)
  - Congenital central nervous system anomaly [Unknown]
